FAERS Safety Report 6102664-3 (Version None)
Quarter: 2009Q1

REPORT INFORMATION
  Report Type: 
  Country: None (occurrence: None)
  Receive Date: 20090304
  Receipt Date: 20081121
  Transmission Date: 20090719
  Serious: No
  Sender: FDA-Public Use
  Company Number: A0758179A

PATIENT
  Age: 78 Year
  Sex: Male

DRUGS (1)
  1. REQUIP [Suspect]
     Indication: PARKINSONISM
     Route: 048

REACTIONS (5)
  - ADVERSE EVENT [None]
  - DRUG INEFFECTIVE [None]
  - FALL [None]
  - SKIN LACERATION [None]
  - SOMNOLENCE [None]
